FAERS Safety Report 9490411 (Version 1)
Quarter: 2013Q3

REPORT INFORMATION
  Report Type: Spontaneous
  Country: US (occurrence: None)
  Receive Date: 20130827
  Receipt Date: 20130827
  Transmission Date: 20140515
  Serious: No
  Sender: FDA-Public Use
  Company Number: None

PATIENT
  Age: 68 Year
  Sex: Female
  Weight: 72.58 kg

DRUGS (6)
  1. METOPROLOL SUCCINATE [Suspect]
     Indication: CARDIAC FAILURE
     Route: 048
     Dates: start: 201302, end: 20130531
  2. SYMBICORT [Concomitant]
  3. SINGULAIR [Concomitant]
  4. ALEVE [Concomitant]
  5. CENTRUM SILVER [Concomitant]
  6. BABY ASPIRIN [Concomitant]

REACTIONS (2)
  - Alopecia [None]
  - Cardiac disorder [None]
